FAERS Safety Report 15211630 (Version 1)
Quarter: 2018Q4

REPORT INFORMATION
  Report Type: Spontaneous
  Country: US (occurrence: US)
  Receive Date: 20180729
  Receipt Date: 20180729
  Transmission Date: 20190204
  Serious: No
  Sender: FDA-Public Use
  Company Number: US-DRREDDYS-USA/USA/12/0022943

PATIENT
  Age: 7 Year
  Sex: Male
  Weight: 18.16 kg

DRUGS (1)
  1. AUGMENTIN [Suspect]
     Active Substance: AMOXICILLIN\CLAVULANATE POTASSIUM
     Indication: NASOPHARYNGITIS
     Route: 048

REACTIONS (1)
  - Product storage error [Unknown]
